FAERS Safety Report 7401153-3 (Version None)
Quarter: 2011Q2

REPORT INFORMATION
  Report Type: 
  Country: None (occurrence: None)
  Receive Date: 20110407
  Receipt Date: 20110328
  Transmission Date: 20111010
  Serious: Yes (Other)
  Sender: FDA-Public Use
  Company Number: US-PURDUE-USA-2006-0024188

PATIENT
  Sex: Male

DRUGS (2)
  1. OXYCONTIN [Suspect]
     Indication: PAIN
     Dosage: 20 MG, Q12H
     Route: 048
     Dates: start: 20010101
  2. OXYCONTIN [Suspect]
     Indication: BACK INJURY
     Dosage: 160 MG, Q8H

REACTIONS (5)
  - MICTURITION DISORDER [None]
  - GAIT DISTURBANCE [None]
  - CONSTIPATION [None]
  - BONE MARROW DISORDER [None]
  - SEXUAL DYSFUNCTION [None]
